FAERS Safety Report 20409069 (Version 1)
Quarter: 2022Q1

REPORT INFORMATION
  Report Type: Spontaneous
  Country: US (occurrence: US)
  Receive Date: 20220201
  Receipt Date: 20220201
  Transmission Date: 20220423
  Serious: Yes (Death, Hospitalization)
  Sender: FDA-Public Use
  Company Number: US-GW PHARMA-202108USGW04258

PATIENT

DRUGS (2)
  1. EPIDIOLEX [Suspect]
     Active Substance: CANNABIDIOL
     Indication: Epilepsy
     Dosage: 340 MILLIGRAM, BID
     Route: 048
     Dates: start: 20190920
  2. EPIDIOLEX [Suspect]
     Active Substance: CANNABIDIOL
     Dosage: 680 MILLIGRAM
     Route: 048
     Dates: start: 20200107, end: 20210908

REACTIONS (3)
  - Death [Fatal]
  - Hospitalisation [Unknown]
  - Product use in unapproved indication [Unknown]

NARRATIVE: CASE EVENT DATE: 20210908
